FAERS Safety Report 11931477 (Version 1)
Quarter: 2016Q1

REPORT INFORMATION
  Report Type: Spontaneous
  Country: US (occurrence: US)
  Receive Date: 20160120
  Receipt Date: 20160120
  Transmission Date: 20160526
  Serious: No
  Sender: FDA-Public Use
  Company Number: US-INCYTE CORPORATION-2015IN004850

PATIENT
  Age: 73 Year
  Sex: Male
  Weight: 76.31 kg

DRUGS (7)
  1. OMEPRAZOLE. [Concomitant]
     Active Substance: OMEPRAZOLE
     Dosage: 40 MG, UNK
  2. PRAVASTATIN [Concomitant]
     Active Substance: PRAVASTATIN\PRAVASTATIN SODIUM
     Dosage: 10 MG, QD
     Route: 048
  3. HYDROCHLOROTHIAZIDE. [Concomitant]
     Active Substance: HYDROCHLOROTHIAZIDE
     Dosage: 12.5 MG, QD
     Route: 048
  4. MULTIVITAMIN                       /07504101/ [Concomitant]
     Active Substance: VITAMINS
     Dosage: 0.4 MG-300 MCG-250 MCG, UNK
     Route: 048
  5. TRAMADOL. [Concomitant]
     Active Substance: TRAMADOL
     Dosage: 50 MG, QD
  6. LISINOPRIL. [Concomitant]
     Active Substance: LISINOPRIL
     Dosage: 10 MG, QD
     Route: 048
  7. JAKAFI [Suspect]
     Active Substance: RUXOLITINIB
     Indication: MYELOFIBROSIS
     Dosage: 20 MG, BID
     Route: 048
     Dates: start: 20150807

REACTIONS (7)
  - White blood cell count increased [Unknown]
  - Back pain [Unknown]
  - Weight decreased [Unknown]
  - Sleep disorder [Unknown]
  - Cough [Unknown]
  - Haemoglobin decreased [Unknown]
  - Anaemia [Unknown]

NARRATIVE: CASE EVENT DATE: 2015
